FAERS Safety Report 11283408 (Version 1)
Quarter: 2015Q3

REPORT INFORMATION
  Report Type: Report from Study
  Country: US (occurrence: US)
  Receive Date: 20150720
  Receipt Date: 20150720
  Transmission Date: 20151125
  Serious: Yes (Other)
  Sender: FDA-Public Use
  Company Number: PHEH2015US013196

PATIENT
  Sex: Male

DRUGS (2)
  1. TOBI [Suspect]
     Active Substance: TOBRAMYCIN
     Indication: GASTROENTERITIS PSEUDOMONAS
  2. TOBI [Suspect]
     Active Substance: TOBRAMYCIN
     Indication: INFECTIVE EXACERBATION OF BRONCHIECTASIS
     Dosage: UNK (300 MG/5 ML), BID
     Route: 055

REACTIONS (2)
  - Off label use [Unknown]
  - Pseudomonas infection [Unknown]
